FAERS Safety Report 10869074 (Version 1)
Quarter: 2015Q1

REPORT INFORMATION
  Report Type: Spontaneous
  Country: US (occurrence: US)
  Receive Date: 20150225
  Receipt Date: 20150225
  Transmission Date: 20150721
  Serious: No
  Sender: FDA-Public Use
  Company Number: US-ASTRAZENECA-2015SE15589

PATIENT
  Age: 50 Year
  Sex: Male
  Weight: 89.4 kg

DRUGS (5)
  1. ZYRTEC [Concomitant]
     Active Substance: CETIRIZINE HYDROCHLORIDE
     Indication: RHINITIS ALLERGIC
     Dosage: DAILY
     Route: 048
     Dates: start: 2000
  2. CRESTOR [Suspect]
     Active Substance: ROSUVASTATIN CALCIUM
     Indication: HYPERCHOLESTEROLAEMIA
     Route: 048
     Dates: end: 20141116
  3. IPRATROPIUM BROMIDE GENERIC ATROVENT [Concomitant]
     Dosage: TWO TIMES A DAY
     Route: 045
     Dates: start: 2000
  4. LISINOPRIL. [Suspect]
     Active Substance: LISINOPRIL
     Indication: HYPERTENSION
     Route: 048
     Dates: start: 2000
  5. FLONASE [Concomitant]
     Active Substance: FLUTICASONE PROPIONATE
     Route: 045
     Dates: start: 2000

REACTIONS (4)
  - Intentional product misuse [Unknown]
  - Back injury [Recovering/Resolving]
  - Blood cholesterol increased [Unknown]
  - Anxiety [Unknown]

NARRATIVE: CASE EVENT DATE: 2010
